FAERS Safety Report 18627524 (Version 3)
Quarter: 2021Q1

REPORT INFORMATION
  Report Type: Spontaneous
  Country: US (occurrence: US)
  Receive Date: 20201217
  Receipt Date: 20210206
  Transmission Date: 20210419
  Serious: No
  Sender: FDA-Public Use
  Company Number: US-SA-2020SA359322

PATIENT
  Sex: Female

DRUGS (1)
  1. LANTUS [Suspect]
     Active Substance: INSULIN GLARGINE
     Indication: TYPE 2 DIABETES MELLITUS
     Dosage: 36 IU, QD
     Route: 065
     Dates: start: 2018

REACTIONS (5)
  - Injection site pain [Unknown]
  - Product quality issue [Unknown]
  - Multiple use of single-use product [Unknown]
  - Device issue [Unknown]
  - Product storage error [Unknown]
